FAERS Safety Report 8771201 (Version 2)
Quarter: 2012Q4

REPORT INFORMATION
  Report Type: 
  Country: US (occurrence: US)
  Receive Date: 20120906
  Receipt Date: 20121005
  Transmission Date: 20130627
  Serious: Yes (Death, Hospitalization, Other)
  Sender: FDA-Public Use
  Company Number: US-BRISTOL-MYERS SQUIBB COMPANY-16879645

PATIENT
  Age: 55 Year
  Sex: Male

DRUGS (9)
  1. ABILIFY [Suspect]
     Indication: DEPRESSION
     Dosage: started either 2 or 5mg,dose increased to 10mg,Jul12
     Route: 048
     Dates: start: 20120620, end: 201208
  2. BUSPAR [Suspect]
     Indication: GENERALISED ANXIETY DISORDER
  3. LEXAPRO [Suspect]
     Indication: MAJOR DEPRESSION
  4. LEXAPRO [Suspect]
     Indication: GENERALISED ANXIETY DISORDER
  5. AMBIEN [Suspect]
     Indication: INSOMNIA
     Dosage: QHS
  6. LIPITOR [Concomitant]
  7. ALLEGRA [Concomitant]
  8. VITAMIN C [Concomitant]
  9. VITAMIN D3 [Concomitant]

REACTIONS (5)
  - Pneumonia aspiration [Fatal]
  - Dysphagia [Unknown]
  - Parkinsonism [Unknown]
  - Fall [Unknown]
  - Clavicle fracture [Unknown]
